FAERS Safety Report 4326120-8 (Version None)
Quarter: 2004Q1

REPORT INFORMATION
  Report Type: 
  Country: None (occurrence: None)
  Receive Date: 20040324
  Receipt Date: 20040312
  Transmission Date: 20041129
  Serious: Yes (Hospitalization)
  Sender: FDA-Public Use
  Company Number: GB-JNJFOC-20040302716

PATIENT
  Sex: Male

DRUGS (2)
  1. REMICADE [Suspect]
     Indication: RHEUMATOID ARTHRITIS
     Dosage: 7TH INFUSION
     Dates: end: 20040311
  2. BETA-BLOCKER (BETA BLOCKER AGENTS [Concomitant]

REACTIONS (3)
  - BLOOD PRESSURE DECREASED [None]
  - MYOCARDIAL INFARCTION [None]
  - PRURITUS [None]
